FAERS Safety Report 24275048 (Version 1)
Quarter: 2024Q3

REPORT INFORMATION
  Report Type: Spontaneous
  Country: AU (occurrence: AU)
  Receive Date: 20240902
  Receipt Date: 20240902
  Transmission Date: 20241016
  Serious: Yes (Death)
  Sender: COLLEGIUM PHARMACEUTICAL
  Company Number: AU-GRUNENTHAL-2024-124236

PATIENT
  Sex: Female

DRUGS (4)
  1. NUCYNTA [Interacting]
     Active Substance: TAPENTADOL HYDROCHLORIDE
     Indication: Product used for unknown indication
     Dosage: UNK UNK, UNKNOWN
     Route: 065
  2. PREGABALIN [Interacting]
     Active Substance: PREGABALIN
     Indication: Product used for unknown indication
     Dosage: UNK UNK, UNKNOWN
     Route: 065
  3. DESVENLAFAXINE [Interacting]
     Active Substance: DESVENLAFAXINE
     Indication: Product used for unknown indication
     Dosage: UNK, UNKNOWN
     Route: 065
  4. PHOLCODINE [Interacting]
     Active Substance: PHOLCODINE
     Indication: Product used for unknown indication
     Dosage: 200 MILLILITRE, UNKNOWN
     Route: 065

REACTIONS (3)
  - Toxicity to various agents [Fatal]
  - Accidental overdose [Fatal]
  - Drug interaction [Fatal]
